FAERS Safety Report 7964975-6 (Version None)
Quarter: 2011Q4

REPORT INFORMATION
  Report Type: 
  Country: None (occurrence: None)
  Receive Date: 20111208
  Receipt Date: 20111003
  Transmission Date: 20120403
  Serious: Yes (Life-Threatening, Hospitalization)
  Sender: FDA-Public Use
  Company Number: US-ROCHE-1018603

PATIENT
  Sex: Female
  Weight: 54.7 kg

DRUGS (15)
  1. HERCEPTIN [Suspect]
     Indication: BREAST CANCER METASTATIC
     Dosage: LAST DOSE IS ON: 21/AUG/2011
  2. SENNOSIDE [Concomitant]
     Dosage: 2 TABLET
     Route: 048
  3. CALCITRIOL [Concomitant]
     Dosage: 50000 UNITS
     Route: 048
  4. CALCIUM NOS/VITAMIN D NOS [Concomitant]
     Dosage: CALCIUM: 600 MG, VIT D: 400 IU, 1 TABLET
     Route: 048
  5. GEMCITABINE HYDROCHLORIDE [Suspect]
     Indication: CHEMOTHERAPY
     Dates: start: 20110913
  6. LAPATINIB [Suspect]
     Indication: CHEMOTHERAPY
     Dates: start: 20110913
  7. LAPATINIB [Suspect]
     Route: 048
  8. AVASTIN [Suspect]
     Indication: BREAST CANCER METASTATIC
     Dates: start: 20100601, end: 20110805
  9. AMOXICILLIN AND CLAVULANATE POTASSIUM [Concomitant]
     Dosage: 875/125, 1 TABLET
     Route: 048
  10. IBUPROFEN [Concomitant]
     Route: 048
  11. CARBOPLATIN [Suspect]
     Indication: BREAST CANCER METASTATIC
     Dosage: LAST DOSE IS ON: 21/AUG/2011
  12. DOCUSATE SODIUM [Concomitant]
     Route: 048
  13. PROCHLORPERAZINE MALEATE [Concomitant]
     Route: 048
  14. FLUTICASONE PROPIONATE [Concomitant]
     Dosage: DOSAGE FORM: NASAL SPRAY
  15. PEGFILGRASTIM [Concomitant]
     Route: 058

REACTIONS (3)
  - ANAEMIA [None]
  - THROMBOCYTOPENIA [None]
  - EPISTAXIS [None]
